FAERS Safety Report 21264793 (Version 1)
Quarter: 2022Q3

REPORT INFORMATION
  Report Type: Spontaneous
  Country: US (occurrence: None)
  Receive Date: 20220827
  Receipt Date: 20220827
  Transmission Date: 20221027
  Serious: No
  Sender: FDA-Public Use
  Company Number: None

PATIENT
  Age: 45 Year
  Sex: Female
  Weight: 96.8 kg

DRUGS (3)
  1. LOMUSTINE [Suspect]
     Active Substance: LOMUSTINE
     Dates: end: 20220707
  2. PROCARBAZINE [Suspect]
     Active Substance: PROCARBAZINE
     Dates: end: 20220727
  3. VINCRISTINE SULFATE [Suspect]
     Active Substance: VINCRISTINE SULFATE
     Dates: end: 20220714

REACTIONS (1)
  - Platelet count decreased [None]

NARRATIVE: CASE EVENT DATE: 20220817
